FAERS Safety Report 21053317 (Version 3)
Quarter: 2022Q3

REPORT INFORMATION
  Report Type: Report from Study
  Country: US (occurrence: US)
  Receive Date: 20220707
  Receipt Date: 20220907
  Transmission Date: 20221026
  Serious: Yes (Other)
  Sender: FDA-Public Use
  Company Number: US-NOVARTISPH-NVSC2022US152052

PATIENT
  Age: 46 Year
  Sex: Male

DRUGS (1)
  1. COSENTYX [Suspect]
     Active Substance: SECUKINUMAB
     Indication: Ankylosing spondylitis
     Dosage: 150 MG, QW,  (QW FOR FOUR WEEKS AND THEN Q4W)
     Route: 058
     Dates: start: 20220601

REACTIONS (11)
  - Neuropathy peripheral [Unknown]
  - Limb discomfort [Unknown]
  - Hypoaesthesia [Unknown]
  - Middle insomnia [Unknown]
  - Paraesthesia [Unknown]
  - Eosinophil count increased [Unknown]
  - Haemoglobin increased [Unknown]
  - Knuckle pads [Unknown]
  - SARS-CoV-2 test positive [Unknown]
  - Inflammation [Unknown]
  - Drug ineffective [Unknown]

NARRATIVE: CASE EVENT DATE: 20220712
